FAERS Safety Report 14656349 (Version 4)
Quarter: 2018Q2

REPORT INFORMATION
  Report Type: Report from Study
  Country: NL (occurrence: NL)
  Receive Date: 20180319
  Receipt Date: 20180516
  Transmission Date: 20180711
  Serious: Yes (Hospitalization)
  Sender: FDA-Public Use
  Company Number: NL-PFIZER INC-2018101718

PATIENT
  Age: 4 Year
  Sex: Female
  Weight: 15 kg

DRUGS (6)
  1. SIROLIMUS. [Suspect]
     Active Substance: SIROLIMUS
     Dosage: 0.4 MG, 1X/DAY
     Dates: start: 20180115, end: 20180128
  2. COLECALCIFEROL [Concomitant]
     Active Substance: CHOLECALCIFEROL
     Indication: SUPPLEMENTATION THERAPY
     Dosage: UNK
     Route: 048
     Dates: start: 20140630
  3. SALBUTAMOL [Concomitant]
     Active Substance: ALBUTEROL
     Indication: TRACHEAL DISORDER
     Dosage: UNK
     Dates: start: 20161209
  4. SIROLIMUS. [Suspect]
     Active Substance: SIROLIMUS
     Dosage: 0.4 MG, 2X/DAY
     Dates: start: 20180129, end: 20180305
  5. SIROLIMUS. [Suspect]
     Active Substance: SIROLIMUS
     Dosage: 0.4 MG, 2X/DAY
     Dates: start: 20180110, end: 20180113
  6. TRIMETHOPRIM SULFAMETHOXAZOLE [Concomitant]
     Active Substance: SULFAMETHOXAZOLE\TRIMETHOPRIM
     Indication: PROPHYLAXIS
     Dosage: UNK
     Route: 048
     Dates: start: 20171117

REACTIONS (2)
  - Respiratory tract infection viral [Recovered/Resolved]
  - Respiratory failure [Recovered/Resolved]

NARRATIVE: CASE EVENT DATE: 20180306
